FAERS Safety Report 9115173 (Version 1)
Quarter: 2013Q1

REPORT INFORMATION
  Report Type: Spontaneous
  Country: US (occurrence: US)
  Receive Date: 20130225
  Receipt Date: 20130225
  Transmission Date: 20140127
  Serious: Yes (Other)
  Sender: FDA-Public Use
  Company Number: US-COVIDIEN/TYCO HEALTHCARE/MALLINCKRODT-T201300842

PATIENT
  Sex: Male

DRUGS (3)
  1. GABLOFEN [Suspect]
     Indication: MUSCLE SPASTICITY
     Dosage: 710 MCG/DAY
     Route: 037
     Dates: start: 201203
  2. GABLOFEN [Suspect]
     Dosage: 680 MCG/DAY
     Route: 037
     Dates: start: 201108
  3. GABLOFEN [Suspect]
     Dosage: 650 MCG/DAY
     Route: 037
     Dates: start: 201203

REACTIONS (2)
  - Muscle spasticity [Unknown]
  - Drug effect decreased [Unknown]
